FAERS Safety Report 6993688-2 (Version None)
Quarter: 2010Q3

REPORT INFORMATION
  Report Type: 
  Country: None (occurrence: None)
  Receive Date: 20100917
  Receipt Date: 20100616
  Transmission Date: 20110219
  Serious: Yes (Hospitalization)
  Sender: FDA-Public Use
  Company Number: US-ASTRAZENECA-2010SE28195

PATIENT
  Age: 35 Year
  Sex: Male

DRUGS (3)
  1. SEROQUEL [Suspect]
     Indication: BIPOLAR DISORDER
     Route: 048
     Dates: end: 20100607
  2. SEROQUEL [Suspect]
     Indication: MANIA
     Route: 048
     Dates: end: 20100607
  3. DEPAKOTE [Concomitant]

REACTIONS (2)
  - DYSLIPIDAEMIA [None]
  - MANIA [None]
